FAERS Safety Report 15334837 (Version 1)
Quarter: 2018Q4

REPORT INFORMATION
  Report Type: Spontaneous
  Country: SE (occurrence: SE)
  Receive Date: 20180830
  Receipt Date: 20180830
  Transmission Date: 20190204
  Serious: Yes (Other)
  Sender: FDA-Public Use
  Company Number: SE-TEVA-2018-SE-949742

PATIENT
  Age: 24 Year
  Sex: Female

DRUGS (4)
  1. ESCITALOPRAM [Suspect]
     Active Substance: ESCITALOPRAM OXALATE
     Indication: OBSESSIVE THOUGHTS
     Route: 048
     Dates: start: 20180808, end: 20180808
  2. EUTHYROX [Concomitant]
     Active Substance: LEVOTHYROXINE SODIUM
  3. ESCITALOPRAM [Suspect]
     Active Substance: ESCITALOPRAM OXALATE
     Indication: ANXIETY
  4. LIOTHYRONINE [Concomitant]
     Active Substance: LIOTHYRONINE

REACTIONS (4)
  - Product substitution issue [Recovered/Resolved]
  - Tunnel vision [Recovered/Resolved]
  - Headache [Recovered/Resolved]
  - Tremor [Recovered/Resolved]

NARRATIVE: CASE EVENT DATE: 20180808
